FAERS Safety Report 17890113 (Version 2)
Quarter: 2022Q4

REPORT INFORMATION
  Report Type: Spontaneous
  Country: US (occurrence: US)
  Receive Date: 20200612
  Receipt Date: 20221014
  Transmission Date: 20230113
  Serious: Yes (Death, Other)
  Sender: FDA-Public Use
  Company Number: US-SAARTEMIS-SAC202006100062

PATIENT
  Age: 64 Year
  Sex: Female

DRUGS (2)
  1. ZANTAC [Suspect]
     Active Substance: RANITIDINE HYDROCHLORIDE
     Indication: Dyspepsia
     Dosage: 150 MG, QD
     Dates: start: 201605, end: 201911
  2. ZANTAC [Suspect]
     Active Substance: RANITIDINE HYDROCHLORIDE
     Indication: Gastrooesophageal reflux disease

REACTIONS (4)
  - Hepatic cancer [Fatal]
  - Colorectal cancer [Fatal]
  - Lung neoplasm malignant [Fatal]
  - Prostate cancer [Fatal]

NARRATIVE: CASE EVENT DATE: 20170201
